FAERS Safety Report 7450727-2 (Version None)
Quarter: 2011Q2

REPORT INFORMATION
  Report Type: 
  Country: None (occurrence: None)
  Receive Date: 20110502
  Receipt Date: 20110418
  Transmission Date: 20111010
  Serious: Yes (Death, Life-Threatening, Hospitalization, Disabling, Other)
  Sender: FDA-Public Use
  Company Number: ES-CELGENEUS-144-21880-10061766

PATIENT
  Sex: Female
  Weight: 57 kg

DRUGS (24)
  1. BORTEZOMIB [Suspect]
     Dosage: 2 MILLIGRAM
     Route: 051
     Dates: start: 20100608
  2. ASPIRIN [Concomitant]
     Indication: PROPHYLAXIS
     Dosage: 100 MILLIGRAM
     Route: 048
     Dates: start: 20091112, end: 20100601
  3. NEUPOGEN [Concomitant]
     Indication: NEUTROPENIA
     Dosage: 300 MICROGRAM
     Dates: start: 20100616, end: 20100618
  4. CALCIUM GLUCONATE [Concomitant]
     Indication: HYPOCALCAEMIA
     Dosage: 4 DOSAGE FORMS
     Route: 051
     Dates: start: 20100616, end: 20100618
  5. MEROPENEM [Concomitant]
     Indication: FEBRILE NEUTROPENIA
     Dosage: 3 GRAM
     Route: 051
     Dates: start: 20100618, end: 20100701
  6. FORTASEC [Concomitant]
     Dosage: 6 MILLIGRAM
     Route: 048
     Dates: start: 20100625, end: 20100701
  7. EPOGEN [Concomitant]
     Dosage: 150 MILLIGRAM
     Route: 058
     Dates: end: 20100531
  8. CIPROFLOXACIN [Concomitant]
     Dosage: 800 MILLIGRAM
     Route: 051
     Dates: start: 20100604, end: 20100614
  9. REVLIMID [Suspect]
     Indication: MULTIPLE MYELOMA
     Dosage: 5 MILLIGRAM
     Route: 048
     Dates: start: 20100521, end: 20100608
  10. DEXAMETHASONE [Suspect]
     Indication: MULTIPLE MYELOMA
     Dosage: 40 MILLIGRAM
     Route: 048
     Dates: start: 20100521, end: 20100608
  11. DEXAMETHASONE [Suspect]
     Dosage: 40 MILLIGRAM
     Route: 048
     Dates: start: 20091112
  12. BORTEZOMIB [Suspect]
     Dosage: 2 MILLIGRAM
     Route: 051
     Dates: start: 20100629
  13. LEVOTHYROXINE SODIUM [Concomitant]
     Indication: HYPOTHYROIDISM
     Dosage: 75 MILLIGRAM
     Route: 048
  14. ACYCLOVIR [Concomitant]
     Indication: PROPHYLAXIS
     Dosage: 800 MILLIGRAM
     Route: 048
     Dates: start: 20091112, end: 20100531
  15. FORTECORTIN [Concomitant]
     Dosage: 40 MILLIGRAM
     Route: 051
     Dates: start: 20100608, end: 20100630
  16. ALLOPURINOL [Concomitant]
     Dosage: 300 MILLIGRAM
     Route: 048
     Dates: start: 20100608, end: 20100630
  17. PLASMA [Concomitant]
     Indication: COAGULOPATHY
     Dosage: 4 IU (INTERNATIONAL UNIT)
     Route: 051
     Dates: start: 20100615, end: 20100701
  18. PRIMPERAN TAB [Concomitant]
     Indication: NAUSEA
     Dosage: 20 MILLIGRAM
     Route: 051
     Dates: start: 20100620, end: 20100701
  19. ADOLONTA [Concomitant]
     Dosage: 100 MILLIGRAM
     Route: 051
     Dates: start: 20100604, end: 20100630
  20. CALCIUM D SANDOZ FORTE [Concomitant]
     Indication: HYPOCALCAEMIA
     Dosage: 1000 MILLIGRAM
     Route: 051
     Dates: start: 20100611, end: 20100615
  21. CAPOTEN [Concomitant]
     Indication: ACUTE PULMONARY OEDEMA
     Dosage: 25 MILLIGRAM
     Route: 048
     Dates: start: 20100630, end: 20100701
  22. REVLIMID [Suspect]
     Dosage: 5 MILLIGRAM
     Route: 048
     Dates: start: 20091112
  23. DEXAMETHASONE [Suspect]
     Dosage: 20 MILLIGRAM/SQ. METER
     Route: 065
     Dates: start: 20100629
  24. SEGURIL [Concomitant]
     Indication: PLEURAL DISORDER
     Dosage: 40 MILLIGRAM
     Route: 051
     Dates: start: 20100609, end: 20100701

REACTIONS (7)
  - NEUTROPENIA [None]
  - ACUTE PULMONARY OEDEMA [None]
  - ANAEMIA [None]
  - THROMBOCYTOPENIA [None]
  - LEUKAEMIA PLASMACYTIC [None]
  - DIARRHOEA [None]
  - HYPERTENSIVE CRISIS [None]
